FAERS Safety Report 8239098-1 (Version None)
Quarter: 2012Q1

REPORT INFORMATION
  Report Type: 
  Country: None (occurrence: None)
  Receive Date: 20120327
  Receipt Date: 20120315
  Transmission Date: 20120608
  Serious: Yes (Other)
  Sender: FDA-Public Use
  Company Number: NO-ELI_LILLY_AND_COMPANY-NO201203005647

PATIENT
  Age: 14 Year
  Sex: Male

DRUGS (1)
  1. FLUOXETINE HCL [Suspect]
     Indication: DEPRESSION
     Dosage: 10 MG, QD
     Route: 048
     Dates: start: 20120303, end: 20120303

REACTIONS (2)
  - PAIN IN EXTREMITY [None]
  - ANXIETY [None]
